FAERS Safety Report 18338445 (Version 1)
Quarter: 2020Q4

REPORT INFORMATION
  Report Type: Spontaneous
  Country: SE (occurrence: SE)
  Receive Date: 20201002
  Receipt Date: 20201002
  Transmission Date: 20210113
  Serious: Yes (Other)
  Sender: FDA-Public Use
  Company Number: SE-TEVA-2020-SE-1833474

PATIENT
  Age: 93 Year
  Sex: Female

DRUGS (6)
  1. LETROZOLE. [Suspect]
     Active Substance: LETROZOLE
     Indication: BREAST CANCER
  2. MEMANTINE. [Concomitant]
     Active Substance: MEMANTINE
     Dates: start: 20190212
  3. LETROZOLE. [Suspect]
     Active Substance: LETROZOLE
     Indication: OESTROGEN THERAPY
     Dosage: 2.5 MG, 1 TABLET AT 08
     Route: 048
     Dates: start: 20200121
  4. GALANTAMINE. [Concomitant]
     Active Substance: GALANTAMINE
     Dates: start: 20190123
  5. IDOTRIM [Concomitant]
     Active Substance: TRIMETHOPRIM
     Dates: start: 20181128
  6. ALVEDON [Concomitant]
     Active Substance: ACETAMINOPHEN
     Dates: start: 20180831

REACTIONS (2)
  - Breath odour [Recovered/Resolved]
  - Cough [Recovering/Resolving]

NARRATIVE: CASE EVENT DATE: 2020
